FAERS Safety Report 8077646-5 (Version None)
Quarter: 2012Q1

REPORT INFORMATION
  Report Type: 
  Country: None (occurrence: None)
  Receive Date: 20120127
  Receipt Date: 20120123
  Transmission Date: 20120608
  Serious: Yes (Other)
  Sender: FDA-Public Use
  Company Number: GR-ABBOTT-12P-066-0896846-00

PATIENT
  Age: 60 Year
  Sex: Female

DRUGS (6)
  1. FILICINE [Concomitant]
     Indication: SUPPLEMENTATION THERAPY
  2. MEGA-CALCIUM [Concomitant]
     Indication: OSTEOPOROSIS PROPHYLAXIS
  3. PREDNISOLONE [Concomitant]
     Indication: RHEUMATOID ARTHRITIS
  4. ONE-ALPHA [Concomitant]
     Indication: OSTEOPOROSIS PROPHYLAXIS
  5. METHOTREXATE [Concomitant]
     Indication: RHEUMATOID ARTHRITIS
  6. HUMIRA [Suspect]
     Indication: RHEUMATOID ARTHRITIS
     Route: 058
     Dates: end: 20120101

REACTIONS (3)
  - HYPERTENSION [None]
  - CENTRAL NERVOUS SYSTEM LESION [None]
  - MEMORY IMPAIRMENT [None]
